FAERS Safety Report 7922027-5 (Version None)
Quarter: 2011Q4

REPORT INFORMATION
  Report Type: 
  Country: None (occurrence: None)
  Receive Date: 20111117
  Receipt Date: 20111109
  Transmission Date: 20120403
  Serious: Yes (Other)
  Sender: FDA-Public Use
  Company Number: JP-BAXTER-2011BH007229

PATIENT
  Age: 74 Year
  Sex: Male

DRUGS (1)
  1. CYCLOPHOSPHAMIDE [Suspect]
     Indication: RHEUMATOID ARTHRITIS
     Route: 048
     Dates: start: 19840501, end: 20050601

REACTIONS (3)
  - URINARY BLADDER ATROPHY [None]
  - CYSTITIS HAEMORRHAGIC [None]
  - TRANSITIONAL CELL CARCINOMA [None]
